FAERS Safety Report 8536730-X (Version None)
Quarter: 2012Q3

REPORT INFORMATION
  Report Type: 
  Country: None (occurrence: None)
  Receive Date: 20120725
  Receipt Date: 20120717
  Transmission Date: 20120928
  Serious: Yes (Hospitalization)
  Sender: FDA-Public Use
  Company Number: US-US-EMD SERONO, INC.-7148563

PATIENT
  Sex: Female

DRUGS (2)
  1. ANTIVERT [Concomitant]
     Indication: VERTIGO
  2. REBIF [Suspect]
     Indication: PRODUCT USED FOR UNKNOWN INDICATION
     Route: 058
     Dates: start: 20110209

REACTIONS (2)
  - VERTIGO [None]
  - VISION BLURRED [None]
